FAERS Safety Report 7275319-X (Version None)
Quarter: 2011Q1

REPORT INFORMATION
  Report Type: 
  Country: None (occurrence: None)
  Receive Date: 20110204
  Receipt Date: 20110125
  Transmission Date: 20110831
  Serious: Yes (Other)
  Sender: FDA-Public Use
  Company Number: PHHY2011FR08171

PATIENT
  Age: 85 Year
  Sex: Female
  Weight: 40 kg

DRUGS (1)
  1. TEGRETOL [Suspect]
     Indication: FACIAL NEURALGIA
     Dosage: 100 MG, TID
     Route: 048

REACTIONS (3)
  - CONFUSIONAL STATE [None]
  - ANXIETY [None]
  - DISORIENTATION [None]
